FAERS Safety Report 4299613-X (Version None)
Quarter: 2004Q1

REPORT INFORMATION
  Report Type: 
  Country: None (occurrence: None)
  Receive Date: 20040217
  Receipt Date: 20040203
  Transmission Date: 20041129
  Serious: Yes (Hospitalization)
  Sender: FDA-Public Use
  Company Number: 04P-056-0247223-00

PATIENT
  Age: 69 Year
  Sex: Male
  Weight: 73 kg

DRUGS (7)
  1. FENOFIBRATE [Suspect]
     Indication: HYPERCHOLESTEROLAEMIA
     Dosage: 200 MG, 1 IN 1 D, ORAL
     Route: 048
     Dates: start: 20001213
  2. SPAGLUMIC ACID [Concomitant]
  3. INDOMETHACIN [Concomitant]
  4. LATANOPROST [Concomitant]
  5. CLONAZEPAM [Concomitant]
  6. CHONDROITIN SULFATE SODIUM [Concomitant]
  7. DORZOLAMIDE HYDROCHLORIDE [Concomitant]

REACTIONS (7)
  - BLOOD CALCIUM INCREASED [None]
  - ERECTILE DYSFUNCTION [None]
  - HYPERPARATHYROIDISM [None]
  - NEPHRITIS INTERSTITIAL [None]
  - PRURITUS GENERALISED [None]
  - RENAL FAILURE CHRONIC [None]
  - SARCOIDOSIS [None]
